FAERS Safety Report 9527788 (Version 3)
Quarter: 2013Q4

REPORT INFORMATION
  Report Type: Spontaneous
  Country: ES (occurrence: None)
  Receive Date: 20130913
  Receipt Date: 20131120
  Transmission Date: 20140711
  Serious: Yes (Death, Hospitalization)
  Sender: FDA-Public Use
  Company Number: SYM-2013-10583

PATIENT
  Age: 47 Year
  Sex: Male

DRUGS (6)
  1. FLUOROURACIL [Suspect]
     Indication: COLORECTAL CANCER METASTATIC
     Dosage: EVERY OTHER WEEK BOLUS
     Route: 040
     Dates: start: 20130220, end: 20130220
  2. IRINOTECAN [Suspect]
     Indication: COLORECTAL CANCER METASTATIC
     Dosage: EVERY OTHER WEEK BOLUS
     Route: 042
     Dates: start: 20130220, end: 20130220
  3. AFLIBERCEPT [Suspect]
     Indication: COLORECTAL CANCER METASTATIC
     Route: 042
     Dates: start: 20130220, end: 20130220
  4. LEUCOVORIN [Suspect]
     Indication: COLORECTAL CANCER METASTATIC
     Dosage: EVERY OTHER WEEK INTRAVENOUS (NOT SPECIFIED)
     Route: 042
     Dates: start: 20130220, end: 20130220
  5. FENTANYL [Concomitant]
  6. ANALGESICS [Concomitant]

REACTIONS (6)
  - Malignant neoplasm progression [None]
  - Intestinal perforation [None]
  - Thrombosis in device [None]
  - Decreased appetite [None]
  - Epistaxis [None]
  - Constipation [None]
